FAERS Safety Report 10178393 (Version 1)
Quarter: 2014Q2

REPORT INFORMATION
  Report Type: Spontaneous
  Country: US (occurrence: US)
  Receive Date: 20140519
  Receipt Date: 20140519
  Transmission Date: 20141212
  Serious: Yes (Other)
  Sender: FDA-Public Use
  Company Number: US-JNJFOC-20140505348

PATIENT
  Age: 60 Year
  Sex: Male

DRUGS (3)
  1. ZYTIGA [Suspect]
     Indication: PRODUCT USED FOR UNKNOWN INDICATION
     Route: 048
  2. HORMONES NOS [Suspect]
     Indication: HORMONE THERAPY
     Route: 065
  3. PREDNISONE [Concomitant]
     Indication: PRODUCT USED FOR UNKNOWN INDICATION
     Route: 065

REACTIONS (8)
  - Syncope [Recovered/Resolved]
  - Disease progression [Unknown]
  - Weight decreased [Recovered/Resolved]
  - Dyspnoea [Recovered/Resolved]
  - Palpitations [Recovered/Resolved]
  - Blood alkaline phosphatase increased [Recovered/Resolved]
  - Thinking abnormal [Recovered/Resolved]
  - Decreased appetite [Recovered/Resolved]
